FAERS Safety Report 26190387 (Version 1)
Quarter: 2025Q4

REPORT INFORMATION
  Report Type: Spontaneous
  Country: US (occurrence: US)
  Receive Date: 20251223
  Receipt Date: 20251223
  Transmission Date: 20260117
  Serious: No
  Sender: AMGEN
  Company Number: US-AMGEN-USASP2025252668

PATIENT

DRUGS (1)
  1. MVASI [Suspect]
     Active Substance: BEVACIZUMAB-AWWB
     Indication: Product used for unknown indication
     Dosage: UNK (ORDERED DOSE: 1000 MILLIGRAM, REQUESTING FOR REPLACEMENT: (2) 400 MILLIGRAM, (2) 100 MILLIGRAM)
     Route: 065

REACTIONS (1)
  - Blood pressure increased [Unknown]
